FAERS Safety Report 8547086-0 (Version None)
Quarter: 2012Q3

REPORT INFORMATION
  Report Type: 
  Country: None (occurrence: None)
  Receive Date: 20120727
  Receipt Date: 20120213
  Transmission Date: 20120928
  Serious: No
  Sender: FDA-Public Use
  Company Number: US-ASTRAZENECA-2012SE10135

PATIENT
  Age: 17 Year
  Sex: Female

DRUGS (3)
  1. SEROQUEL XR [Suspect]
     Indication: DEPRESSION
     Route: 048
  2. SEROQUEL XR [Suspect]
     Indication: MANIA
     Route: 048
  3. SEROQUEL XR [Suspect]
     Indication: ANXIETY
     Route: 048

REACTIONS (3)
  - OFF LABEL USE [None]
  - WEIGHT INCREASED [None]
  - ABDOMINAL DISTENSION [None]
